FAERS Safety Report 7065217-9 (Version None)
Quarter: 2010Q4

REPORT INFORMATION
  Report Type: 
  Country: None (occurrence: None)
  Receive Date: 20101022
  Receipt Date: 20101022
  Transmission Date: 20110411
  Serious: Yes (Life-Threatening)
  Sender: FDA-Public Use
  Company Number: None

PATIENT
  Sex: Male
  Weight: 117.9352 kg

DRUGS (1)
  1. ULORIC [Suspect]
     Indication: GOUT
     Dosage: 80MG 1 A DAY  (OFF + ON)
     Dates: start: 20100306, end: 20100719

REACTIONS (1)
  - MYOCARDIAL INFARCTION [None]
